FAERS Safety Report 9233294 (Version 1)
Quarter: 2013Q2

REPORT INFORMATION
  Report Type: Spontaneous
  Country: CO (occurrence: CO)
  Receive Date: 20130416
  Receipt Date: 20130416
  Transmission Date: 20140414
  Serious: Yes (Death, Hospitalization, Other)
  Sender: FDA-Public Use
  Company Number: CO-AMGEN-COLSP2013025930

PATIENT
  Sex: Female

DRUGS (4)
  1. ENBREL [Suspect]
     Indication: RHEUMATOID ARTHRITIS
     Dosage: 50 MG, MONTHLY
     Dates: start: 2010, end: 201210
  2. ACETAMINOPHEN W/CODEINE [Concomitant]
     Indication: RHEUMATOID ARTHRITIS
     Dosage: 500 MG, AS NEEDED
     Route: 048
  3. ASPIRINETAS [Concomitant]
     Indication: PROPHYLAXIS
     Dosage: UNK
     Route: 048
  4. ASPIRINETAS [Concomitant]
     Indication: CARDIOVASCULAR DISORDER

REACTIONS (3)
  - Infarction [Fatal]
  - Incorrect route of drug administration [Unknown]
  - Cardiac failure [Fatal]
